FAERS Safety Report 8227862-4 (Version None)
Quarter: 2012Q1

REPORT INFORMATION
  Report Type: 
  Country: None (occurrence: None)
  Receive Date: 20120322
  Receipt Date: 20111128
  Transmission Date: 20120608
  Serious: Yes (Life-Threatening, Other)
  Sender: FDA-Public Use
  Company Number: AT-ROCHE-1008152

PATIENT
  Sex: Female
  Weight: 90 kg

DRUGS (9)
  1. PREDNISOLONE [Suspect]
     Indication: RHEUMATOID ARTHRITIS
     Route: 048
     Dates: start: 20070201
  2. CAL-D-VITA [Concomitant]
     Indication: OSTEOPOROSIS
     Route: 048
  3. CREON [Concomitant]
     Indication: PANCREATITIS
     Route: 048
  4. PANTOPRAZOLE [Concomitant]
     Indication: GASTRIC ULCER
     Route: 048
  5. BISOPROLOL FUMARATE [Concomitant]
     Indication: CORONARY ARTERY DISEASE
     Route: 048
  6. METHOTREXATE [Suspect]
     Indication: RHEUMATOID ARTHRITIS
     Route: 048
     Dates: start: 20070201
  7. MABTHERA [Suspect]
     Indication: RHEUMATOID ARTHRITIS
     Route: 042
     Dates: start: 20090401, end: 20110516
  8. ENALAPRIL [Concomitant]
     Indication: HYPERTENSION
     Route: 048
  9. SIMVASTATIN [Concomitant]
     Indication: HYPERCHOLESTEROLAEMIA
     Route: 048

REACTIONS (2)
  - PULMONARY EMBOLISM [None]
  - GASTRIC ULCER [None]
